FAERS Safety Report 25266174 (Version 3)
Quarter: 2025Q2

REPORT INFORMATION
  Report Type: Report from Study
  Country: US (occurrence: US)
  Receive Date: 20250504
  Receipt Date: 20250610
  Transmission Date: 20250716
  Serious: Yes (Hospitalization, Other)
  Sender: JOHNSON AND JOHNSON
  Company Number: US-JNJFOC-20250438508

PATIENT
  Age: 70 Year
  Sex: Female

DRUGS (11)
  1. UPTRAVI [Suspect]
     Active Substance: SELEXIPAG
     Indication: Pulmonary arterial hypertension
     Dosage: EXPIRY DATE: 30-JUN-2027
     Route: 048
     Dates: start: 202107
  2. UPTRAVI [Suspect]
     Active Substance: SELEXIPAG
     Indication: Pulmonary arterial hypertension
     Route: 048
     Dates: start: 20250411
  3. REMODULIN [Suspect]
     Active Substance: TREPROSTINIL
     Indication: Pulmonary arterial hypertension
  4. REMODULIN [Suspect]
     Active Substance: TREPROSTINIL
     Dates: start: 202411
  5. REMODULIN [Suspect]
     Active Substance: TREPROSTINIL
  6. REMODULIN [Suspect]
     Active Substance: TREPROSTINIL
  7. REMODULIN [Suspect]
     Active Substance: TREPROSTINIL
  8. REMODULIN [Suspect]
     Active Substance: TREPROSTINIL
     Dates: start: 202308
  9. REMODULIN [Suspect]
     Active Substance: TREPROSTINIL
     Dates: start: 202502
  10. WINREVAIR [Concomitant]
     Active Substance: SOTATERCEPT-CSRK
     Indication: Product used for unknown indication
  11. TADALAFIL [Concomitant]
     Active Substance: TADALAFIL
     Indication: Product used for unknown indication

REACTIONS (18)
  - Device dislocation [Recovered/Resolved]
  - Dyspnoea [Unknown]
  - Fluid retention [Unknown]
  - Pneumonia [Unknown]
  - Epistaxis [Unknown]
  - Syncope [Unknown]
  - Hypoxia [Unknown]
  - Platelet count decreased [Unknown]
  - Headache [Recovering/Resolving]
  - Hypotension [Not Recovered/Not Resolved]
  - Peripheral swelling [Unknown]
  - Laryngitis [Unknown]
  - Nasal congestion [Unknown]
  - Decreased appetite [Unknown]
  - Dyspnoea exertional [Not Recovered/Not Resolved]
  - Presyncope [Unknown]
  - Chest pain [Unknown]
  - Fatigue [Unknown]

NARRATIVE: CASE EVENT DATE: 20250101
